FAERS Safety Report 23389045 (Version 1)
Quarter: 2024Q1

REPORT INFORMATION
  Report Type: Spontaneous
  Country: JP (occurrence: JP)
  Receive Date: 20240110
  Receipt Date: 20240110
  Transmission Date: 20240410
  Serious: Yes (Other)
  Sender: FDA-Public Use
  Company Number: JP-002147023-NVSJ2024JP000476

PATIENT
  Sex: Female

DRUGS (1)
  1. DICLOFENAC SODIUM [Suspect]
     Active Substance: DICLOFENAC\DICLOFENAC SODIUM
     Indication: Back pain
     Dosage: ONLY WHEN LOW BACK PAIN WAS VERY SEVERE
     Route: 054
     Dates: start: 202310

REACTIONS (8)
  - Renal impairment [Unknown]
  - Urinary retention [Recovered/Resolved]
  - Abdominal pain lower [Unknown]
  - Faecaloma [Unknown]
  - Constipation [Unknown]
  - Gastrointestinal disorder [Unknown]
  - Concomitant disease aggravated [Unknown]
  - Abdominal discomfort [Unknown]

NARRATIVE: CASE EVENT DATE: 20231201
